FAERS Safety Report 5713619-2 (Version None)
Quarter: 2008Q2

REPORT INFORMATION
  Report Type: 
  Country: None (occurrence: None)
  Receive Date: 20080418
  Receipt Date: 20080407
  Transmission Date: 20081010
  Serious: Yes (Hospitalization)
  Sender: FDA-Public Use
  Company Number: 2008-02306

PATIENT
  Age: 41 Year
  Sex: Male

DRUGS (4)
  1. FIORINAL W/CODEINE 50/325/40/30 [Suspect]
     Indication: INTENTIONAL DRUG MISUSE
     Dosage: ^A PACKAGE^ DAILY X 1 YEAR, ORAL
     Route: 048
  2. IBUPROFEN [Suspect]
     Indication: INTENTIONAL DRUG MISUSE
     Dosage: ^A PACKAGE^ DAILY X 1 YEAR, ORAL
     Route: 048
  3. PARACHOC            (PARAFFIN, LIQUID) [Concomitant]
  4. MICROLAX          (SODIUM CITRATE, SODIUM LAURYL SULFOACETATE) [Concomitant]

REACTIONS (2)
  - GASTRIC ULCER PERFORATION [None]
  - INTENTIONAL DRUG MISUSE [None]
